FAERS Safety Report 4281244-9 (Version None)
Quarter: 2004Q1

REPORT INFORMATION
  Report Type: 
  Country: None (occurrence: None)
  Receive Date: 20040129
  Receipt Date: 20031125
  Transmission Date: 20041129
  Serious: Yes (Life-Threatening, Hospitalization, Disabling, Other)
  Sender: FDA-Public Use
  Company Number: WAES 0311USA02861

PATIENT
  Age: 42 Year
  Sex: Female
  Weight: 88 kg

DRUGS (11)
  1. [THERAPY UNSPECIFIED] [Concomitant]
  2. LORTAB [Concomitant]
     Indication: BACK PAIN
     Route: 048
  3. VICODIN [Concomitant]
     Indication: ARTHRITIS
  4. LORCET 10/650 [Concomitant]
  5. DARVOCET-N 100 [Concomitant]
  6. ASPIRIN [Concomitant]
     Route: 048
  7. BACLOFEN [Concomitant]
     Indication: MUSCLE STRAIN
     Route: 048
  8. VALIUM [Concomitant]
     Indication: ANXIETY
     Route: 048
  9. VASOTEC [Concomitant]
     Indication: HYPERTENSION
     Route: 048
  10. GLUCOTROL XL [Concomitant]
     Indication: DIABETES MELLITUS NON-INSULIN-DEPENDENT
     Route: 048
  11. VIOXX [Suspect]
     Indication: BACK PAIN
     Route: 048
     Dates: start: 20030530, end: 20031014

REACTIONS (29)
  - ANAEMIA [None]
  - ANOREXIA [None]
  - ARTHRITIS [None]
  - BACK INJURY [None]
  - BLOOD CREATININE INCREASED [None]
  - BLOOD UREA INCREASED [None]
  - BRAIN NEOPLASM [None]
  - BRAIN STEM INFARCTION [None]
  - BUNDLE BRANCH BLOCK LEFT [None]
  - COLD SWEAT [None]
  - DEHYDRATION [None]
  - DIABETES MELLITUS INADEQUATE CONTROL [None]
  - DILATATION ATRIAL [None]
  - DUODENAL ULCER HAEMORRHAGE [None]
  - DYSPHAGIA [None]
  - FACIAL PALSY [None]
  - GRAND MAL CONVULSION [None]
  - HEMIPARESIS [None]
  - HYPOKALAEMIA [None]
  - HYPONATRAEMIA [None]
  - NAUSEA [None]
  - POSITIVE ROMBERGISM [None]
  - RECTAL HAEMORRHAGE [None]
  - SINUS TACHYCARDIA [None]
  - SPEECH DISORDER [None]
  - SYNCOPE [None]
  - THOUGHT BLOCKING [None]
  - URINARY TRACT INFECTION [None]
  - VENTRICULAR HYPERTROPHY [None]
